FAERS Safety Report 21173732 (Version 1)
Quarter: 2022Q3

REPORT INFORMATION
  Report Type: Spontaneous
  Country: US (occurrence: US)
  Receive Date: 20220804
  Receipt Date: 20220804
  Transmission Date: 20221026
  Serious: No
  Sender: FDA-Public Use
  Company Number: US-PERRIGO-21US031718

PATIENT
  Age: 89 Year
  Sex: Female
  Weight: 63.492 kg

DRUGS (8)
  1. LORATADINE [Suspect]
     Active Substance: LORATADINE
     Indication: Hypersensitivity
     Dosage: 10 MG, QD
     Route: 048
  2. LORATADINE [Suspect]
     Active Substance: LORATADINE
     Dosage: 20 MG, SINGLE
     Route: 048
     Dates: start: 20211129, end: 20211129
  3. DIPHENHYDRAMINE HYDROCHLORIDE [Concomitant]
     Active Substance: DIPHENHYDRAMINE HYDROCHLORIDE
     Indication: Pruritus
     Dosage: UNK, EVERY NIGHT
     Route: 065
  4. DIPHENHYDRAMINE HYDROCHLORIDE [Concomitant]
     Active Substance: DIPHENHYDRAMINE HYDROCHLORIDE
     Indication: Hypersensitivity
  5. LISINOPRIL [Concomitant]
     Active Substance: LISINOPRIL
     Indication: Hypertension
     Dosage: UNK, EVERY MORNING
     Route: 065
  6. ATENOLOL [Concomitant]
     Active Substance: ATENOLOL
     Indication: Hypertension
     Dosage: UNK, EVERY NIGHT
     Route: 065
  7. SIMVASTATIN [Concomitant]
     Active Substance: SIMVASTATIN
     Indication: Blood cholesterol increased
     Dosage: UNK, EVERY NIGHT
     Route: 065
  8. UNSPECIFIED INGREDIENT [Concomitant]
     Active Substance: UNSPECIFIED INGREDIENT
     Indication: Thyroid disorder
     Dosage: UNK
     Route: 065

REACTIONS (1)
  - Incorrect dose administered [Recovered/Resolved]

NARRATIVE: CASE EVENT DATE: 20211129
